FAERS Safety Report 13718174 (Version 2)
Quarter: 2017Q3

REPORT INFORMATION
  Report Type: Spontaneous
  Country: QA (occurrence: QA)
  Receive Date: 20170705
  Receipt Date: 20170705
  Transmission Date: 20171127
  Serious: Yes (Other)
  Sender: FDA-Public Use
  Company Number: PHHY2017QA092074

PATIENT
  Sex: Male

DRUGS (5)
  1. DIGOXIN. [Suspect]
     Active Substance: DIGOXIN
     Indication: FOETAL EXPOSURE DURING PREGNANCY
     Dosage: (MATERNAL ROUTE: INTRAVENOUS)
     Route: 064
  2. SOTALOL. [Suspect]
     Active Substance: SOTALOL
     Indication: FOETAL EXPOSURE DURING PREGNANCY
     Route: 064
  3. FLECAINIDE [Suspect]
     Active Substance: FLECAINIDE
     Indication: FOETAL EXPOSURE DURING PREGNANCY
     Route: 064
  4. DIGOXIN. [Suspect]
     Active Substance: DIGOXIN
     Dosage: (MATERNAL ROUTE: ORAL)
     Route: 064
  5. AMIODARONE [Suspect]
     Active Substance: AMIODARONE
     Indication: FOETAL EXPOSURE DURING PREGNANCY
     Dosage: (MATERNAL DOSE (1 DF, QD))
     Route: 064

REACTIONS (3)
  - Premature baby [Unknown]
  - Foetal exposure during pregnancy [Unknown]
  - Drug ineffective [Unknown]
